FAERS Safety Report 11531665 (Version 1)
Quarter: 2015Q3

REPORT INFORMATION
  Report Type: Report from Study
  Country: US (occurrence: US)
  Receive Date: 20150921
  Receipt Date: 20150921
  Transmission Date: 20151125
  Serious: Yes (Hospitalization, Other)
  Sender: FDA-Public Use
  Company Number: US-SA-2014SA156693

PATIENT
  Age: 40 Year
  Sex: Female

DRUGS (3)
  1. AUBAGIO [Suspect]
     Active Substance: TERIFLUNOMIDE
     Indication: RELAPSING-REMITTING MULTIPLE SCLEROSIS
     Route: 048
     Dates: start: 20141025
  2. AMANTADINE [Concomitant]
     Active Substance: AMANTADINE
  3. RITALIN [Suspect]
     Active Substance: METHYLPHENIDATE HYDROCHLORIDE
     Route: 065

REACTIONS (13)
  - Ataxia [Not Recovered/Not Resolved]
  - Nuclear magnetic resonance imaging abnormal [Unknown]
  - Bronchitis [Unknown]
  - Fatigue [Unknown]
  - Cough [Unknown]
  - Gait disturbance [Recovering/Resolving]
  - Nausea [Unknown]
  - Diarrhoea [Recovered/Resolved]
  - Multiple sclerosis relapse [Unknown]
  - Decreased appetite [Unknown]
  - Memory impairment [Not Recovered/Not Resolved]
  - Memory impairment [Unknown]
  - Abdominal discomfort [Unknown]

NARRATIVE: CASE EVENT DATE: 2014
